FAERS Safety Report 5163286-4 (Version None)
Quarter: 2006Q4

REPORT INFORMATION
  Report Type: 
  Country: None (occurrence: None)
  Receive Date: 20061204
  Receipt Date: 20060502
  Transmission Date: 20070319
  Serious: Yes (Hospitalization)
  Sender: FDA-Public Use
  Company Number: US-ELI_LILLY_AND_COMPANY-US200608005567

PATIENT
  Sex: Male
  Weight: 124.72 kg

DRUGS (3)
  1. ARIPIPRAZOLE [Concomitant]
     Dates: start: 20050101
  2. ZYPREXA [Suspect]
     Indication: DEPRESSION
     Dosage: 5 MG, UNK
     Dates: start: 20060101
  3. ZYPREXA [Suspect]
     Dosage: 2.5 MG, UNK

REACTIONS (3)
  - DEEP VEIN THROMBOSIS [None]
  - DIABETES MELLITUS [None]
  - WEIGHT INCREASED [None]
